FAERS Safety Report 7323107-8 (Version None)
Quarter: 2011Q1

REPORT INFORMATION
  Report Type: 
  Country: None (occurrence: None)
  Receive Date: 20110301
  Receipt Date: 20100615
  Transmission Date: 20110831
  Serious: Yes (Other)
  Sender: FDA-Public Use
  Company Number: US-BAYER-200941651NA

PATIENT
  Sex: Female
  Weight: 98.413 kg

DRUGS (20)
  1. MEPROZINE [Concomitant]
     Dosage: UNK
     Dates: start: 20080612
  2. PREMARIN [Concomitant]
     Dosage: UNK
     Dates: start: 20060101
  3. YASMIN [Suspect]
     Indication: ORAL CONTRACEPTION
     Dosage: UNK
     Route: 048
     Dates: start: 20040101, end: 20091001
  4. ZANTAC [Concomitant]
     Dosage: 50 MG, UNK
  5. METHYLPREDNISOLONE ACETATE [Concomitant]
     Dosage: 4 MG, UNK
  6. OCELLA [Suspect]
     Indication: ORAL CONTRACEPTION
     Dosage: UNK
     Route: 048
     Dates: start: 20040101, end: 20091001
  7. SULFAMETHOXAZOLE AND TRIMETHOPRIM DOUBLE STRENGTH [Concomitant]
     Dosage: UNK
     Dates: start: 20040129
  8. TEMAZEPAM [Concomitant]
     Dosage: 30 MG, UNK
     Dates: start: 20040220
  9. INDOMETHACIN [Concomitant]
     Dosage: UNK
     Dates: start: 20090201
  10. UNCODEABLE ^UNCLASSIFIABLE^ [Concomitant]
     Dosage: UNK
     Dates: start: 20090913
  11. BUTALBITAL ACETAMINOPHEN AND CAFFEINE [Concomitant]
     Dosage: UNK
     Dates: start: 20090201
  12. DIPHENHYDRAMINE [Concomitant]
     Dosage: UNK
     Dates: start: 20090903
  13. FAMOTIDINE [Concomitant]
     Dosage: 40 MG, UNK
  14. NSAID'S [Concomitant]
  15. CEFADROXIL [Concomitant]
     Dosage: 500 MG, UNK
  16. MEPERIDINE/PROMETHAZINE [Concomitant]
     Dosage: UNK
     Dates: start: 20040220
  17. CLINDAMYCIN HYDROCHLORIDE [Concomitant]
     Dosage: 150 MG, UNK
  18. NEXIUM [Concomitant]
     Dosage: 40 MG, UNK
  19. PENICILLIN VK [Concomitant]
     Dosage: 500 MG, UNK
     Dates: start: 20081029
  20. UNCODEABLE ^UNCLASSIFIABLE^ [Concomitant]
     Dosage: UNK
     Dates: start: 20091010

REACTIONS (12)
  - FLATULENCE [None]
  - GALLBLADDER CHOLESTEROLOSIS [None]
  - TREMOR [None]
  - ABDOMINAL DISTENSION [None]
  - RASH [None]
  - DIARRHOEA [None]
  - BOWEL MOVEMENT IRREGULARITY [None]
  - ABDOMINAL PAIN UPPER [None]
  - GASTRITIS [None]
  - CHOLECYSTITIS CHRONIC [None]
  - PYREXIA [None]
  - URTICARIA [None]
